FAERS Safety Report 7482862-7 (Version None)
Quarter: 2011Q2

REPORT INFORMATION
  Report Type: 
  Country: None (occurrence: None)
  Receive Date: 20110516
  Receipt Date: 20110510
  Transmission Date: 20111010
  Serious: Yes (Other)
  Sender: FDA-Public Use
  Company Number: US-PFIZER INC-2011100977

PATIENT
  Sex: Female

DRUGS (8)
  1. TAXOTERE [Suspect]
     Dosage: UNK, EVERY CYCLE
     Route: 042
     Dates: start: 20110401, end: 20110401
  2. ADRIAMYCIN PFS [Concomitant]
     Dosage: UNK
  3. NEULASTA [Concomitant]
     Dosage: UNK
  4. CYCLOPHOSPHAMIDE [Concomitant]
     Dosage: UNK
  5. DIFLUCAN [Suspect]
     Indication: FUNGAL INFECTION
     Dosage: UNK
  6. GLUCOTROL [Concomitant]
     Dosage: UNK
  7. DIFLUCAN [Suspect]
     Indication: CANDIDIASIS
  8. TAXOTERE [Suspect]
     Indication: BREAST CANCER
     Dosage: UNK, EVERY CYCLE
     Route: 042

REACTIONS (14)
  - ABDOMINAL PAIN [None]
  - PYREXIA [None]
  - RASH [None]
  - DRY EYE [None]
  - FUNGAL INFECTION [None]
  - DRUG INTERACTION [None]
  - NAIL DISCOLOURATION [None]
  - MYALGIA [None]
  - LACRIMATION INCREASED [None]
  - MUSCLE SPASMS [None]
  - CANDIDIASIS [None]
  - OROPHARYNGEAL PAIN [None]
  - HEADACHE [None]
  - DYSPEPSIA [None]
